FAERS Safety Report 8910071 (Version 1)
Quarter: 2012Q4

REPORT INFORMATION
  Report Type: 
  Country: US (occurrence: US)
  Receive Date: 20121115
  Receipt Date: 20121115
  Transmission Date: 20130627
  Serious: Yes (Other)
  Sender: FDA-Public Use
  Company Number: US-TEVA-369557USA

PATIENT
  Sex: Female

DRUGS (1)
  1. ACETAMINOPHEN/CODEINE [Suspect]
     Dosage: 300/60

REACTIONS (3)
  - Throat tightness [Unknown]
  - Rash [Unknown]
  - Swelling [Unknown]
